FAERS Safety Report 9220006 (Version 2)
Quarter: 2013Q2

REPORT INFORMATION
  Report Type: Report from Study
  Country: DE (occurrence: DE)
  Receive Date: 20130409
  Receipt Date: 20130503
  Transmission Date: 20140414
  Serious: Yes (Death, Other)
  Sender: FDA-Public Use
  Company Number: DE-ROCHE-1209445

PATIENT
  Sex: 0

DRUGS (1)
  1. ALTEPLASE [Suspect]
     Indication: ISCHAEMIC STROKE
     Dosage: SYSTEMIC BOLUS INFUSION
     Route: 042

REACTIONS (4)
  - Death [Fatal]
  - Haemorrhage intracranial [Unknown]
  - Haemorrhage [Unknown]
  - Subarachnoid haemorrhage [Unknown]
